FAERS Safety Report 18853669 (Version 2)
Quarter: 2021Q1

REPORT INFORMATION
  Report Type: Spontaneous
  Country: JP (occurrence: JP)
  Receive Date: 20210205
  Receipt Date: 20210324
  Transmission Date: 20210420
  Serious: Yes (Hospitalization, Other)
  Sender: FDA-Public Use
  Company Number: JP-PFIZER INC-2021082579

PATIENT
  Age: 49 Year
  Sex: Male
  Weight: 63.7 kg

DRUGS (6)
  1. AFINITOR [Suspect]
     Active Substance: EVEROLIMUS
     Indication: ENDOCRINE NEOPLASM
     Dosage: 10 MG, 1X/DAY
     Route: 048
     Dates: start: 20190403, end: 20200616
  2. SUTENT [Suspect]
     Active Substance: SUNITINIB MALATE
     Indication: ENDOCRINE NEOPLASM
     Dosage: 25 MG, 1X/DAY
     Route: 048
     Dates: start: 20200607, end: 20201208
  3. EQUA [Concomitant]
     Active Substance: VILDAGLIPTIN
     Dosage: UNK
  4. LOPERAMIDE [Concomitant]
     Active Substance: LOPERAMIDE
     Dosage: UNK
  5. SOMATULINE [LANREOTIDE] [Concomitant]
     Active Substance: LANREOTIDE
     Dosage: UNK
     Route: 058
     Dates: start: 20190522
  6. LOXOPROFEN NA [Concomitant]
     Active Substance: LOXOPROFEN SODIUM
     Dosage: UNK

REACTIONS (5)
  - Cardiac failure [Recovering/Resolving]
  - Oxygen saturation decreased [Unknown]
  - Pulmonary congestion [Unknown]
  - Interstitial lung disease [Recovering/Resolving]
  - Pleural effusion [Unknown]

NARRATIVE: CASE EVENT DATE: 20201208
